FAERS Safety Report 9915775 (Version 2)
Quarter: 2014Q3

REPORT INFORMATION
  Report Type: Spontaneous
  Country: FR (occurrence: None)
  Receive Date: 20140218
  Receipt Date: 20140804
  Transmission Date: 20150326
  Serious: Yes (Hospitalization)
  Sender: FDA-Public Use
  Company Number: FR-2014-0500

PATIENT
  Age: 59 Year
  Sex: Female

DRUGS (10)
  1. TAMOXIFENE [Concomitant]
     Active Substance: TAMOXIFEN
  2. NOVANTRONE [Suspect]
     Active Substance: MITOXANTRONE HYDROCHLORIDE
     Indication: BREAST CANCER METASTATIC
     Route: 042
     Dates: start: 201210, end: 201302
  3. NAVELBINE [Suspect]
     Active Substance: VINORELBINE TARTRATE
     Indication: BREAST CANCER METASTATIC
     Route: 042
     Dates: start: 201210, end: 201302
  4. FLUOROURACIL. [Suspect]
     Active Substance: FLUOROURACIL
     Indication: BREAST CANCER METASTATIC
     Route: 042
     Dates: start: 2011, end: 201105
  5. CYCLOPHOSPHAMIDE (CYCLOPHOSPHAMIDE) [Suspect]
     Active Substance: CYCLOPHOSPHAMIDE
     Indication: BREAST CANCER METASTATIC
     Route: 042
     Dates: start: 2011, end: 201105
  6. AVASTIN [Suspect]
     Active Substance: BEVACIZUMAB
     Indication: BREAST CANCER METASTATIC
     Route: 042
     Dates: start: 201206, end: 201209
  7. XELODA [Suspect]
     Active Substance: CAPECITABINE
     Indication: BREAST CANCER METASTATIC
     Dosage: 1000 MG, QD (1/DAY) , TWO OUT OF THREE WEEKS
     Route: 048
     Dates: start: 201305, end: 201403
  8. EPIRUBICINE [Suspect]
     Active Substance: EPIRUBICIN
     Indication: BREAST CANCER METASTATIC
     Route: 042
     Dates: start: 2011, end: 201105
  9. FEMARA [Suspect]
     Active Substance: LETROZOLE
     Indication: BREAST CANCER METASTATIC
     Route: 048
     Dates: start: 201105, end: 201206
  10. TAXOL [Suspect]
     Active Substance: PACLITAXEL
     Indication: BREAST CANCER METASTATIC
     Route: 042
     Dates: start: 201206, end: 201209

REACTIONS (3)
  - Dyspnoea [None]
  - Ventricular hypertrophy [None]
  - Myocardial ischaemia [None]

NARRATIVE: CASE EVENT DATE: 201309
